FAERS Safety Report 7754678-5 (Version None)
Quarter: 2011Q3

REPORT INFORMATION
  Report Type: 
  Country: None (occurrence: None)
  Receive Date: 20110915
  Receipt Date: 20110906
  Transmission Date: 20111222
  Serious: Yes (Hospitalization, Congenital Anomaly, Other)
  Sender: FDA-Public Use
  Company Number: US-RB-028671-11

PATIENT
  Sex: Female

DRUGS (2)
  1. SUBOXONE [Suspect]
     Indication: DRUG DEPENDENCE
     Route: 063
     Dates: start: 20100921, end: 20100925
  2. SUBOXONE [Suspect]
     Indication: FIBROMYALGIA
     Dosage: 56 MG
     Route: 064
     Dates: start: 20091231, end: 20100921

REACTIONS (7)
  - INFANTILE APNOEIC ATTACK [None]
  - 21-HYDROXYLASE DEFICIENCY [None]
  - PRECOCIOUS PUBERTY [None]
  - MATERNAL EXPOSURE DURING PREGNANCY [None]
  - GASTROOESOPHAGEAL REFLUX DISEASE [None]
  - EXPOSURE DURING BREAST FEEDING [None]
  - MULTIPLE ALLERGIES [None]
